FAERS Safety Report 6017574-X (Version None)
Quarter: 2008Q4

REPORT INFORMATION
  Report Type: 
  Country: None (occurrence: None)
  Receive Date: 20081223
  Receipt Date: 20081215
  Transmission Date: 20090506
  Serious: Yes (Hospitalization)
  Sender: FDA-Public Use
  Company Number: US-PFIZER INC-2008087270

PATIENT
  Sex: Male
  Weight: 101.2 kg

DRUGS (14)
  1. PRAZSOIN HCL [Suspect]
     Route: 048
     Dates: start: 20070101
  2. BLINDED *PLACEBO [Suspect]
     Indication: OSTEOARTHRITIS
     Dosage: FREQUENCY: BID; INTERVAL: DAILY
     Route: 048
     Dates: start: 20080607, end: 20080811
  3. CELECOXIB [Suspect]
     Indication: OSTEOARTHRITIS
     Dosage: FREQUENCY: BID; INTERVAL: DAILY
     Route: 048
     Dates: start: 20080607, end: 20080811
  4. BLINDED IBUPROFEN [Suspect]
     Indication: OSTEOARTHRITIS
     Dosage: FREQUENCY: BID; INTERVAL: DAILY
     Route: 048
     Dates: start: 20080607, end: 20080811
  5. NAPROXEN [Suspect]
     Indication: OSTEOARTHRITIS
     Dosage: FREQUENCY: BID; INTERVAL: DAILY
     Route: 048
     Dates: start: 20080607, end: 20080811
  6. NEXIUM [Concomitant]
     Dosage: UNK
     Route: 048
     Dates: start: 20080607, end: 20080810
  7. ACETYLSALICYLIC ACID [Concomitant]
     Route: 048
     Dates: start: 20030101
  8. BENAZEPRIL HYDROCHLORIDE [Concomitant]
     Route: 048
     Dates: start: 20030101
  9. METOPROLOL [Concomitant]
     Route: 048
     Dates: start: 20030101
  10. LOVASTATIN [Concomitant]
     Route: 048
     Dates: start: 20080429
  11. HYDROCHLOROTHIAZIDE [Concomitant]
     Route: 048
     Dates: start: 20070726
  12. MULTI-VITAMINS [Concomitant]
     Route: 048
     Dates: start: 20050101
  13. DIPHENHYDRAMINE HCL [Concomitant]
     Route: 048
     Dates: start: 20050101
  14. PSYLLIUM [Concomitant]
     Route: 048
     Dates: start: 20050101

REACTIONS (2)
  - COSTOCHONDRITIS [None]
  - HYPOTENSION [None]
